FAERS Safety Report 17394982 (Version 1)
Quarter: 2020Q1

REPORT INFORMATION
  Report Type: Spontaneous
  Country: CA (occurrence: CA)
  Receive Date: 20200210
  Receipt Date: 20200210
  Transmission Date: 20200409
  Serious: Yes (Other)
  Sender: FDA-Public Use
  Company Number: CA-AUROBINDO-AUR-APL-2020-005486

PATIENT
  Age: 34 Year
  Sex: Female
  Weight: 57 kg

DRUGS (1)
  1. TOPIRAMATE TABLET [Suspect]
     Active Substance: TOPIRAMATE
     Indication: MIGRAINE
     Dosage: 50.0 MILLIGRAM, ONCE A DAY
     Route: 048

REACTIONS (6)
  - Migraine [Unknown]
  - Condition aggravated [Unknown]
  - Product physical issue [Unknown]
  - Night sweats [Unknown]
  - Insomnia [Unknown]
  - Palpitations [Unknown]
